FAERS Safety Report 4584326-7 (Version None)
Quarter: 2005Q1

REPORT INFORMATION
  Report Type: 
  Country: None (occurrence: None)
  Receive Date: 20050125
  Receipt Date: 20041029
  Transmission Date: 20050727
  Serious: No
  Sender: FDA-Public Use
  Company Number: USA041082153

PATIENT
  Age: 57 Year
  Sex: Female
  Weight: 45 kg

DRUGS (2)
  1. FORTEO [Suspect]
     Indication: OSTEOPENIA
     Dosage: 20 UG/1 DAY
     Dates: start: 20041025
  2. FOSAMAX [Concomitant]

REACTIONS (5)
  - DRUG INEFFECTIVE [None]
  - FALL [None]
  - FRACTURE [None]
  - INJECTION SITE PAIN [None]
  - INJECTION SITE REACTION [None]
